FAERS Safety Report 5194113-7 (Version None)
Quarter: 2006Q4

REPORT INFORMATION
  Report Type: 
  Country: None (occurrence: None)
  Receive Date: 20061222
  Receipt Date: 20061215
  Transmission Date: 20070319
  Serious: Yes (Hospitalization)
  Sender: FDA-Public Use
  Company Number: 163-21880-06120757

PATIENT
  Age: 36 Year
  Sex: Female

DRUGS (2)
  1. REVLIMID [Suspect]
     Indication: BLOOD DISORDER
     Dosage: 10 MG, 1 IN 1 D, ORAL
     Route: 048
     Dates: start: 20061006
  2. REVLIMID [Suspect]
     Indication: MYELOFIBROSIS
     Dosage: 10 MG, 1 IN 1 D, ORAL
     Route: 048
     Dates: start: 20061006

REACTIONS (3)
  - ANAEMIA [None]
  - MYELODYSPLASTIC SYNDROME [None]
  - SPLENOMEGALY [None]
